FAERS Safety Report 7365592-1 (Version None)
Quarter: 2011Q1

REPORT INFORMATION
  Report Type: 
  Country: None (occurrence: None)
  Receive Date: 20110322
  Receipt Date: 20110310
  Transmission Date: 20110831
  Serious: Yes (Other)
  Sender: FDA-Public Use
  Company Number: US-BAYER-2011-022522

PATIENT
  Sex: Female

DRUGS (4)
  1. YASMIN [Suspect]
     Indication: PRODUCT USED FOR UNKNOWN INDICATION
     Dosage: UNK
     Dates: start: 20070306, end: 20080925
  2. OCELLA [Suspect]
     Indication: PRODUCT USED FOR UNKNOWN INDICATION
     Dosage: UNK
     Dates: start: 20070306, end: 20080925
  3. OCELLA [Suspect]
     Dosage: UNK
     Dates: end: 20100329
  4. YASMIN [Suspect]
     Dosage: UNK
     Dates: end: 20100329

REACTIONS (2)
  - CHOLELITHIASIS [None]
  - INJURY [None]
